FAERS Safety Report 12454841 (Version 1)
Quarter: 2016Q2

REPORT INFORMATION
  Report Type: Spontaneous
  Country: KR (occurrence: KR)
  Receive Date: 20160610
  Receipt Date: 20160610
  Transmission Date: 20160815
  Serious: Yes (Other)
  Sender: FDA-Public Use
  Company Number: KR-CIPLA LTD.-2016KR06343

PATIENT

DRUGS (6)
  1. ENTECAVIR. [Suspect]
     Active Substance: ENTECAVIR
     Dosage: 1 MG/DAY (PREVIOUSLY EXPOSED)
     Route: 065
  2. ENTECAVIR. [Suspect]
     Active Substance: ENTECAVIR
     Indication: CHRONIC HEPATITIS B
     Dosage: 1 MG, QD
     Route: 065
  3. ADEFOVIR DIPIVOXIL. [Suspect]
     Active Substance: ADEFOVIR DIPIVOXIL
     Indication: CHRONIC HEPATITIS B
     Dosage: 10 MG/DAY
     Route: 065
  4. TELBIVUDINE [Suspect]
     Active Substance: TELBIVUDINE
     Indication: CHRONIC HEPATITIS B
     Dosage: UNK
     Route: 065
  5. TENOFOVIR [Suspect]
     Active Substance: TENOFOVIR
     Indication: CHRONIC HEPATITIS B
     Dosage: 300 MG, QD
     Route: 065
  6. LAMIVUDINE. [Suspect]
     Active Substance: LAMIVUDINE
     Indication: CHRONIC HEPATITIS B
     Dosage: 100 MG/DAY
     Route: 065

REACTIONS (3)
  - Treatment failure [Unknown]
  - Drug resistance [Unknown]
  - Benign pancreatic neoplasm [Unknown]
